FAERS Safety Report 9982429 (Version 1)
Quarter: 2014Q1

REPORT INFORMATION
  Report Type: Spontaneous
  Country: PR (occurrence: PR)
  Receive Date: 20140307
  Receipt Date: 20140307
  Transmission Date: 20141002
  Serious: No
  Sender: FDA-Public Use
  Company Number: PR-ABBVIE-13P-131-1184032-00

PATIENT
  Sex: Female
  Weight: 108.96 kg

DRUGS (9)
  1. HUMIRA [Suspect]
     Indication: PRODUCT USED FOR UNKNOWN INDICATION
     Route: 058
  2. VERAPAMIL [Concomitant]
     Indication: HYPERTENSION
     Route: 048
  3. ENAPRAMIL [Concomitant]
     Indication: HYPERTENSION
     Route: 048
  4. ASPIRIN [Concomitant]
     Indication: PRODUCT USED FOR UNKNOWN INDICATION
     Route: 048
  5. CLOBESTASOL CREAM [Concomitant]
     Indication: PSORIASIS
     Route: 061
  6. BETAMETASOLE LOTION [Concomitant]
     Indication: PSORIASIS
     Route: 061
  7. VITAMIN C [Concomitant]
     Indication: PRODUCT USED FOR UNKNOWN INDICATION
     Route: 048
  8. SINGULAIR [Concomitant]
     Indication: PRODUCT USED FOR UNKNOWN INDICATION
  9. HYDROCHLOORTHIAZIDE [Concomitant]
     Indication: DIURETIC THERAPY
     Route: 048

REACTIONS (4)
  - Device malfunction [Unknown]
  - Haemoglobin decreased [Not Recovered/Not Resolved]
  - Pain [Recovered/Resolved]
  - Incorrect product storage [Unknown]
